FAERS Safety Report 25330485 (Version 2)
Quarter: 2025Q3

REPORT INFORMATION
  Report Type: Spontaneous
  Country: EU (occurrence: EU)
  Receive Date: 20250519
  Receipt Date: 20250704
  Transmission Date: 20251020
  Serious: Yes (Hospitalization, Other)
  Sender: CURRAX PHARMACEUTICALS
  Company Number: None

PATIENT
  Age: 29 Year
  Sex: Male
  Weight: 135 kg

DRUGS (3)
  1. BUPROPION HYDROCHLORIDE\NALTREXONE HYDROCHLORIDE [Suspect]
     Active Substance: BUPROPION HYDROCHLORIDE\NALTREXONE HYDROCHLORIDE
     Indication: Overweight
     Route: 048
     Dates: start: 202503, end: 202503
  2. BUPROPION HYDROCHLORIDE\NALTREXONE HYDROCHLORIDE [Suspect]
     Active Substance: BUPROPION HYDROCHLORIDE\NALTREXONE HYDROCHLORIDE
     Dosage: STRENGTH 8/90 MG, 2 DF Q12H (MAXIMUM DOSE IN ONE MONTH)
     Route: 048
     Dates: start: 202503, end: 202503
  3. BUPROPION HYDROCHLORIDE\NALTREXONE HYDROCHLORIDE [Suspect]
     Active Substance: BUPROPION HYDROCHLORIDE\NALTREXONE HYDROCHLORIDE
     Route: 048
     Dates: start: 202503, end: 20250511

REACTIONS (18)
  - Epilepsy [Unknown]
  - Seizure [Recovered/Resolved]
  - Syncope [Unknown]
  - Fall [Unknown]
  - Head injury [Unknown]
  - Haemorrhage [Unknown]
  - Musculoskeletal stiffness [Unknown]
  - Neck pain [Unknown]
  - Glossodynia [Unknown]
  - Concussion [Recovered/Resolved]
  - Contusion [Recovered/Resolved]
  - Disorientation [Unknown]
  - Myalgia [Recovered/Resolved]
  - Dyspnoea [Unknown]
  - Hyperhidrosis [Recovered/Resolved]
  - Headache [Recovered/Resolved]
  - Nausea [Recovered/Resolved]
  - Dizziness [Unknown]

NARRATIVE: CASE EVENT DATE: 20250301
